FAERS Safety Report 11703002 (Version 3)
Quarter: 2016Q3

REPORT INFORMATION
  Report Type: Report from Study
  Country: TR (occurrence: TR)
  Receive Date: 20151105
  Receipt Date: 20160706
  Transmission Date: 20161109
  Serious: Yes (Death, Other)
  Sender: FDA-Public Use
  Company Number: TR-SEATTLE GENETICS-2015SGN01731

PATIENT

DRUGS (38)
  1. BELOC                              /00030002/ [Concomitant]
     Dosage: UNK
     Dates: start: 20150801
  2. SODIUM CHLORIDE. [Concomitant]
     Active Substance: SODIUM CHLORIDE
     Dosage: 500 ML, UNK
     Dates: start: 20150801
  3. VOLTAREN [Concomitant]
     Active Substance: DICLOFENAC SODIUM
     Dosage: 75 MG, UNK
     Dates: start: 20151001
  4. ENOX [Concomitant]
     Dosage: UNK
     Dates: start: 20150801
  5. MOPEM [Concomitant]
     Dosage: 1 G, UNK
     Route: 042
     Dates: start: 20150801
  6. VOLUVEN [Concomitant]
     Active Substance: HYDROXYETHYL STARCH 130/0.4
     Dosage: 500 ML, UNK
     Dates: start: 20150801
  7. CORDARONE [Concomitant]
     Active Substance: AMIODARONE HYDROCHLORIDE
     Dosage: 200 MG, UNK
     Dates: start: 20150802
  8. KALINOR                            /00031402/ [Concomitant]
     Active Substance: POTASSIUM CITRATE
     Dosage: UNK
     Dates: start: 20151001
  9. HUMALOG MIX [Concomitant]
     Active Substance: INSULIN LISPRO
     Dosage: UNK
     Dates: start: 20150801
  10. HUMAN ALBUMIN [Concomitant]
     Active Substance: ALBUMIN HUMAN
     Dosage: UNK
     Dates: start: 20150801
  11. HUMULIN R [Concomitant]
     Active Substance: INSULIN HUMAN
     Dosage: UNK
     Dates: start: 20150801
  12. NAHCO3 [Concomitant]
     Active Substance: SODIUM BICARBONATE
     Dosage: UNK
     Dates: start: 20150801
  13. PARACEROL [Concomitant]
     Dosage: UNK
     Dates: start: 20150801
  14. MAGNESIUM SULFATE. [Concomitant]
     Active Substance: MAGNESIUM SULFATE
     Dosage: 4.5 G, UNK
     Dates: start: 20151002
  15. DOXORUBICIN [Suspect]
     Active Substance: DOXORUBICIN
     Indication: HODGKIN^S DISEASE
     Dosage: 50 MG, UNK
     Route: 042
     Dates: start: 20150721, end: 20150721
  16. PANTONIX [Concomitant]
     Dosage: 40 MG, UNK
     Route: 042
     Dates: start: 20150801
  17. URSACTIVE [Concomitant]
     Dosage: 250 MG, UNK
     Dates: start: 20151001
  18. BRENTUXIMAB VEDOTIN [Suspect]
     Active Substance: BRENTUXIMAB VEDOTIN
     Indication: HODGKIN^S DISEASE
     Dosage: 127 MG, UNK
     Route: 042
     Dates: start: 20150721, end: 20150721
  19. PREDNOL-L [Concomitant]
     Dosage: 40 MG, UNK
     Dates: start: 20150801
  20. TARGOCID [Concomitant]
     Active Substance: TEICOPLANIN
     Dosage: 200 MG, UNK
     Dates: start: 20150801
  21. BUDECORT STERI NEB [Concomitant]
     Dosage: UNK
     Dates: start: 20150802
  22. VINBLASTINE [Suspect]
     Active Substance: VINBLASTINE
     Indication: HODGKIN^S DISEASE
     Dosage: 12 MG, UNK
     Route: 042
     Dates: start: 20150721, end: 20150721
  23. DEXTROSE. [Concomitant]
     Active Substance: DEXTROSE
     Dosage: 500 ML, UNK
     Dates: start: 20150801
  24. NEVPARIN [Concomitant]
     Dosage: UNK
     Dates: start: 20150802
  25. ABOUND [Concomitant]
     Dosage: 24 G, UNK
     Dates: start: 20151001
  26. ADEPIRON [Concomitant]
     Dosage: 500 MG, UNK
     Dates: start: 20151002
  27. DACARBAZINE. [Suspect]
     Active Substance: DACARBAZINE
     Indication: HODGKIN^S DISEASE
     Dosage: 750 MG, UNK
     Route: 042
     Dates: start: 20150721, end: 20150721
  28. ASPIRIN                            /00002701/ [Concomitant]
     Active Substance: ASPIRIN
     Dosage: 100 MG, UNK
     Dates: start: 20150801
  29. BIEMEFRIN [Concomitant]
     Dosage: UNK
     Dates: start: 20150801
  30. DOBCARD [Concomitant]
     Dosage: UNK
     Dates: start: 20150801
  31. FLAGYL [Concomitant]
     Active Substance: METRONIDAZOLE\METRONIDAZOLE HYDROCHLORIDE
     Dosage: 500 MG, UNK
     Dates: start: 20150801
  32. LEUCOSTIM [Concomitant]
     Active Substance: FILGRASTIM
     Dosage: UNK
     Dates: start: 20150802
  33. RANITAB                            /00550801/ [Concomitant]
     Dosage: UNK
     Dates: start: 20150802
  34. TRADOLEX [Concomitant]
     Dosage: UNK
     Dates: start: 20151002
  35. GADEXON [Concomitant]
     Dosage: UNK
     Dates: start: 20150801
  36. COLIMYCIN                          /00013203/ [Concomitant]
     Dosage: 150 MG, UNK
     Dates: start: 20151001
  37. PROTIFAR [Concomitant]
     Dosage: UNK
     Dates: start: 20151001
  38. MEROSID [Concomitant]
     Dosage: 1000 MG, UNK
     Dates: start: 20151001

REACTIONS (1)
  - Sepsis [Fatal]

NARRATIVE: CASE EVENT DATE: 20151026
